FAERS Safety Report 12841479 (Version 3)
Quarter: 2016Q4

REPORT INFORMATION
  Report Type: Report from Study
  Country: None (occurrence: AU)
  Receive Date: 20161012
  Receipt Date: 20161116
  Transmission Date: 20170207
  Serious: Yes (Hospitalization)
  Sender: FDA-Public Use
  Company Number: AU-ABBVIE-16P-008-1744421-00

PATIENT
  Age: 70 Year
  Sex: Female
  Weight: 39.1 kg

DRUGS (16)
  1. VENETOCLAX [Suspect]
     Active Substance: VENETOCLAX
     Indication: B-CELL LYMPHOMA
     Dosage: DATE OF MOST RECENT DOSE PRIOR TO THE EVENT ONSET: 09/SEP/2016 OF 800 MG
     Route: 048
     Dates: start: 20160409
  2. CLOPIDOGREL [Concomitant]
     Active Substance: CLOPIDOGREL BISULFATE
     Indication: ACUTE CORONARY SYNDROME
     Dates: start: 20161002
  3. CYCLOPHOSPHAMIDE. [Suspect]
     Active Substance: CYCLOPHOSPHAMIDE
     Indication: B-CELL LYMPHOMA
     Dosage: MOST RECENT DOSE PRIOR TO THE EVENT ONSET: 20/JUL/2016 OF 985 MG WITH A START TIME OF 1555
     Route: 042
     Dates: start: 20160406
  4. METOCLOPRAMIDE. [Concomitant]
     Active Substance: METOCLOPRAMIDE
     Indication: NAUSEA
     Dates: start: 20160407
  5. RITUXIMAB [Suspect]
     Active Substance: RITUXIMAB
     Indication: B-CELL LYMPHOMA
     Dosage: MOST RECENT DOSE PRIOR TO THE EVENT ONSET: 31/AUG/2016 OF 491 MG WITH A START TIME OF 1140
     Route: 042
     Dates: start: 20160406
  6. BACTRIM DS [Concomitant]
     Active Substance: SULFAMETHOXAZOLE\TRIMETHOPRIM
     Indication: PROPHYLAXIS
     Dates: start: 20160518, end: 20160915
  7. METOCLOPRAMIDE. [Concomitant]
     Active Substance: METOCLOPRAMIDE
     Indication: VOMITING
  8. NYSTATIN. [Concomitant]
     Active Substance: NYSTATIN
     Indication: CANDIDA INFECTION
     Dates: start: 20160416
  9. DOXORUBICIN [Suspect]
     Active Substance: DOXORUBICIN
     Indication: B-CELL LYMPHOMA
     Dosage: MOST RECENT DOSE PRIOR TO THE EVENT ONSET: 20/JUL/2016 OF 65 MG WITH A START TIME OF 1505
     Route: 042
     Dates: start: 20160406
  10. VINCRISTINE [Suspect]
     Active Substance: VINCRISTINE
     Indication: B-CELL LYMPHOMA
     Dosage: MOST RECENT DOSE PRIOR TO THE EVENT ONSET: 20/JUL/2016 OF 2 MG WITH A START TIME OF 1135
     Route: 042
     Dates: start: 20160406
  11. PREDNISONE. [Suspect]
     Active Substance: PREDNISONE
     Indication: B-CELL LYMPHOMA
     Dosage: DATE OF MOST RECENT DOSE PRIOR TO THE EVENT ONSET: 24/JUL/2016 (DAYS 1-5)
     Route: 048
     Dates: start: 20160406
  12. PANADOL [Concomitant]
     Active Substance: ACETAMINOPHEN
     Indication: PYREXIA
     Dates: start: 20160506
  13. CLEXANE [Concomitant]
     Active Substance: ENOXAPARIN SODIUM
     Dates: start: 20161002, end: 20161003
  14. TAZOCIN [Concomitant]
     Active Substance: PIPERACILLIN SODIUM\TAZOBACTAM SODIUM
     Indication: PYREXIA
     Dates: start: 20160506
  15. ASPIRIN. [Concomitant]
     Active Substance: ASPIRIN
     Indication: ISCHAEMIA
     Dates: start: 20161001, end: 20161001
  16. CLEXANE [Concomitant]
     Active Substance: ENOXAPARIN SODIUM
     Indication: THROMBOSIS PROPHYLAXIS
     Dates: start: 20160403

REACTIONS (1)
  - Dyspnoea [Recovered/Resolved]

NARRATIVE: CASE EVENT DATE: 20160930
